FAERS Safety Report 8695210 (Version 2)
Quarter: 2013Q4

REPORT INFORMATION
  Report Type: Spontaneous
  Country: US (occurrence: US)
  Receive Date: 20120731
  Receipt Date: 20131101
  Transmission Date: 20140711
  Serious: No
  Sender: FDA-Public Use
  Company Number: US-009507513-1207USA006701

PATIENT
  Sex: Male

DRUGS (1)
  1. CLARITIN-D [Suspect]
     Indication: PRODUCT USED FOR UNKNOWN INDICATION
     Dosage: 50 MG, ONCE

REACTIONS (4)
  - Overdose [Unknown]
  - Faeces discoloured [Not Recovered/Not Resolved]
  - Energy increased [Unknown]
  - Liver injury [Unknown]
